FAERS Safety Report 19678505 (Version 3)
Quarter: 2021Q3

REPORT INFORMATION
  Report Type: Report from Study
  Country: US (occurrence: US)
  Receive Date: 20210809
  Receipt Date: 20210916
  Transmission Date: 20211014
  Serious: Yes (Hospitalization, Other)
  Sender: FDA-Public Use
  Company Number: US-EXELIXIS-XL18421042983

PATIENT

DRUGS (17)
  1. CEFDINIR. [Concomitant]
     Active Substance: CEFDINIR
  2. DULOXETINE. [Concomitant]
     Active Substance: DULOXETINE
  3. HYDROCHLOROTHIAZIDE. [Concomitant]
     Active Substance: HYDROCHLOROTHIAZIDE
  4. TAMSULOSIN [Concomitant]
     Active Substance: TAMSULOSIN
     Dosage: UNK
  5. DURVALUMAB. [Suspect]
     Active Substance: DURVALUMAB
     Indication: OESOPHAGEAL CARCINOMA
     Dosage: 1500 MG, Q4WEEKS
     Route: 042
     Dates: start: 20210723
  6. ROSUVASTATIN. [Concomitant]
     Active Substance: ROSUVASTATIN
  7. CEFPODOXIME [Concomitant]
     Active Substance: CEFPODOXIME
     Dosage: UNK
  8. HYOSCYAMINE. [Concomitant]
     Active Substance: HYOSCYAMINE
     Dosage: UNK
  9. METOPROLOL TARTRATE. [Concomitant]
     Active Substance: METOPROLOL TARTRATE
     Dosage: UNK
  10. AMLODIPINE [Concomitant]
     Active Substance: AMLODIPINE BESYLATE
  11. GABAPENTIN. [Concomitant]
     Active Substance: GABAPENTIN
  12. ONDANSETRON [Concomitant]
     Active Substance: ONDANSETRON
  13. CLOPIDOGREL [Concomitant]
     Active Substance: CLOPIDOGREL BISULFATE
     Dosage: UNK
  14. OXYBUTYNIN CHLORIDE. [Concomitant]
     Active Substance: OXYBUTYNIN CHLORIDE
     Dosage: UNK
  15. APIXABAN [Concomitant]
     Active Substance: APIXABAN
     Indication: PULMONARY EMBOLISM
  16. XL184 [Suspect]
     Active Substance: CABOZANTINIB
     Indication: OESOPHAGEAL CARCINOMA
     Dosage: 40 MG, QD
     Route: 048
     Dates: start: 20210723
  17. OXYCODONE [Concomitant]
     Active Substance: OXYCODONE
     Dosage: UNK

REACTIONS (6)
  - Urinary tract infection bacterial [Unknown]
  - Syncope [Unknown]
  - Acute myocardial infarction [Unknown]
  - Sepsis [Unknown]
  - Iron deficiency anaemia [Unknown]
  - Injury [Unknown]

NARRATIVE: CASE EVENT DATE: 20210726
